FAERS Safety Report 8805486 (Version 2)
Quarter: 2013Q1

REPORT INFORMATION
  Report Type: Spontaneous
  Country: US (occurrence: US)
  Receive Date: 20120924
  Receipt Date: 20130117
  Transmission Date: 20140127
  Serious: Yes (Hospitalization)
  Sender: FDA-Public Use
  Company Number: US-ASTRAZENECA-2012SE72097

PATIENT
  Age: 42 Year
  Sex: Female

DRUGS (1)
  1. NEXIUM [Suspect]
     Route: 048

REACTIONS (5)
  - Gastric haemorrhage [Unknown]
  - Spinal cord injury [Unknown]
  - Nervous system disorder [Unknown]
  - Malaise [Unknown]
  - Drug dose omission [Unknown]
